FAERS Safety Report 23094581 (Version 3)
Quarter: 2023Q4

REPORT INFORMATION
  Report Type: Report from Study
  Country: US (occurrence: US)
  Receive Date: 20231023
  Receipt Date: 20231110
  Transmission Date: 20240109
  Serious: No
  Sender: FDA-Public Use
  Company Number: US-002147023-NVSC2023US226800

PATIENT
  Sex: Female

DRUGS (1)
  1. ENTRESTO [Suspect]
     Active Substance: SACUBITRIL\VALSARTAN
     Indication: Blood pressure management
     Dosage: UNK, BID
     Route: 048
     Dates: start: 20231014

REACTIONS (6)
  - Feeling abnormal [Unknown]
  - Chest pain [Unknown]
  - Dry throat [Unknown]
  - Cough [Unknown]
  - Diarrhoea [Unknown]
  - Drug ineffective [Unknown]
